FAERS Safety Report 10481221 (Version 1)
Quarter: 2014Q3

REPORT INFORMATION
  Report Type: Spontaneous
  Country: US (occurrence: US)
  Receive Date: 20140929
  Receipt Date: 20140929
  Transmission Date: 20150326
  Serious: No
  Sender: FDA-Public Use
  Company Number: US-PFIZER INC-2014266689

PATIENT
  Age: 66 Year
  Sex: Male
  Weight: 100 kg

DRUGS (3)
  1. XELJANZ [Suspect]
     Active Substance: TOFACITINIB CITRATE
     Indication: PAIN
  2. XELJANZ [Suspect]
     Active Substance: TOFACITINIB CITRATE
     Indication: RHEUMATOID ARTHRITIS
     Dosage: 5 MG, 2X/DAY (ONE IN MORNING AND ONE IN EVENING)
     Dates: start: 201409
  3. XELJANZ [Suspect]
     Active Substance: TOFACITINIB CITRATE
     Indication: MUSCULOSKELETAL STIFFNESS

REACTIONS (4)
  - Diarrhoea [Unknown]
  - Hot flush [Not Recovered/Not Resolved]
  - Abdominal discomfort [Not Recovered/Not Resolved]
  - Expired product administered [Unknown]

NARRATIVE: CASE EVENT DATE: 201409
